FAERS Safety Report 5957945-0 (Version None)
Quarter: 2008Q4

REPORT INFORMATION
  Report Type: 
  Country: None (occurrence: None)
  Receive Date: 20081119
  Receipt Date: 20081105
  Transmission Date: 20090506
  Serious: Yes (Disabling, Other)
  Sender: FDA-Public Use
  Company Number: JP-ELI_LILLY_AND_COMPANY-JP200803006611

PATIENT
  Age: 73 Year
  Sex: Female

DRUGS (3)
  1. EVISTA [Suspect]
     Indication: OSTEOPOROSIS POSTMENOPAUSAL
     Dosage: 60 MG, UNK
     Route: 048
     Dates: start: 20060503, end: 20080303
  2. HYPEN [Concomitant]
     Indication: LUMBAR SPINAL STENOSIS
     Dosage: 400 MG, DAILY (1/D)
     Route: 048
     Dates: start: 20070517, end: 20080303
  3. HACHIMIJIO-GAN [Concomitant]
     Dosage: 3 D/F, DAILY (1/D)
     Route: 048
     Dates: start: 20080204, end: 20080303

REACTIONS (3)
  - OEDEMA PERIPHERAL [None]
  - RETINAL ARTERY THROMBOSIS [None]
  - RETINAL VEIN THROMBOSIS [None]
